FAERS Safety Report 6699955-4 (Version None)
Quarter: 2010Q2

REPORT INFORMATION
  Report Type: 
  Country: None (occurrence: None)
  Receive Date: 20100428
  Receipt Date: 20100416
  Transmission Date: 20101027
  Serious: Yes (Other)
  Sender: FDA-Public Use
  Company Number: PHHY2009GB46777

PATIENT
  Sex: Male

DRUGS (9)
  1. CLOZARIL [Suspect]
     Indication: SCHIZOPHRENIA
     Dosage: 825 MG, UNK
     Route: 048
     Dates: start: 20061204
  2. CLOZARIL [Suspect]
     Dosage: 825 MG,DAILY
  3. SIMVASTATIN [Concomitant]
     Indication: HYPERCHOLESTEROLAEMIA
     Dosage: 40 MG, UNK
     Route: 048
  4. VALPROATE SODIUM [Concomitant]
     Indication: AFFECTIVE DISORDER
     Dosage: 1200 MG, UNK
  5. LANSOPRAZOLE [Concomitant]
     Indication: DYSPEPSIA
     Dosage: 30 MG, UNK
     Route: 048
  6. SALBUTAMOL [Concomitant]
     Indication: ASTHMA
     Dosage: 200 UG, TID
  7. BECLOMETHASONE DIPROPIONATE [Concomitant]
     Indication: ASTHMA
     Dosage: 100 UG, BID
  8. BECLOMETHASONE DIPROPIONATE [Concomitant]
     Dosage: 200 MG, BID
  9. SULPIRIDE [Concomitant]
     Indication: SCHIZOPHRENIA
     Dosage: 800 MG, BID

REACTIONS (10)
  - BACK PAIN [None]
  - C-REACTIVE PROTEIN INCREASED [None]
  - CHEST DISCOMFORT [None]
  - CHEST PAIN [None]
  - GASTRITIS [None]
  - HIATUS HERNIA [None]
  - LOWER RESPIRATORY TRACT INFECTION [None]
  - PYREXIA [None]
  - SPUTUM PURULENT [None]
  - VOMITING [None]
